FAERS Safety Report 8814210 (Version 1)
Quarter: 2012Q4

REPORT INFORMATION
  Report Type: Spontaneous
  Country: US (occurrence: None)
  Receive Date: 20120926
  Receipt Date: 20120926
  Transmission Date: 20130627
  Serious: Yes (Other)
  Sender: FDA-Public Use
  Company Number: None

PATIENT
  Age: 26 Year
  Sex: Female
  Weight: 104.33 kg

DRUGS (1)
  1. VIIBRYD [Suspect]
     Indication: CHRONIC PAIN
     Dosage: 40mg  Daily po
     Route: 048
     Dates: start: 20120401, end: 20120701

REACTIONS (3)
  - Sleep paralysis [None]
  - Dyskinesia [None]
  - Head discomfort [None]
